FAERS Safety Report 6661247-7 (Version None)
Quarter: 2010Q1

REPORT INFORMATION
  Report Type: 
  Country: None (occurrence: None)
  Receive Date: 20100326
  Receipt Date: 20100310
  Transmission Date: 20100710
  Serious: Yes (Life-Threatening, Hospitalization, Other)
  Sender: FDA-Public Use
  Company Number: 2010SCPR000439

PATIENT
  Age: 17 Year
  Sex: Male
  Weight: 64 kg

DRUGS (2)
  1. IBUPROFEN [Suspect]
     Indication: DRUG USE FOR UNKNOWN INDICATION
  2. DOXEPIN HYDROCHLORIDE [Suspect]
     Indication: DRUG USE FOR UNKNOWN INDICATION

REACTIONS (28)
  - ALANINE AMINOTRANSFERASE INCREASED [None]
  - ARRHYTHMIA [None]
  - BLOOD ALKALINE PHOSPHATASE INCREASED [None]
  - BLOOD GLUCOSE INCREASED [None]
  - BLOOD POTASSIUM DECREASED [None]
  - BODY TEMPERATURE DECREASED [None]
  - CHEST X-RAY ABNORMAL [None]
  - COMA [None]
  - CYANOSIS [None]
  - DYSPNOEA EXERTIONAL [None]
  - HYPERKALAEMIA [None]
  - HYPERMETABOLISM [None]
  - HYPOXIA [None]
  - LIVER INJURY [None]
  - METABOLIC ACIDOSIS [None]
  - MIOSIS [None]
  - MUSCLE INJURY [None]
  - MYOGLOBINURIA [None]
  - OVERDOSE [None]
  - PNEUMOTHORAX [None]
  - PYREXIA [None]
  - RENAL FAILURE [None]
  - RESPIRATORY ACIDOSIS [None]
  - RESPIRATORY DEPRESSION [None]
  - RESPIRATORY FAILURE [None]
  - RESTLESSNESS [None]
  - SINUS TACHYCARDIA [None]
  - VENTRICULAR TACHYCARDIA [None]
